FAERS Safety Report 12726441 (Version 1)
Quarter: 2016Q3

REPORT INFORMATION
  Report Type: Report from Study
  Country: US (occurrence: US)
  Receive Date: 20160908
  Receipt Date: 20160908
  Transmission Date: 20161109
  Serious: Yes (Other)
  Sender: FDA-Public Use
  Company Number: US-ABBVIE-16K-163-1689339-00

PATIENT
  Age: 42 Year
  Sex: Female

DRUGS (2)
  1. PREDNISONE. [Concomitant]
     Active Substance: PREDNISONE
     Indication: RHEUMATOID ARTHRITIS
  2. HUMIRA [Suspect]
     Active Substance: ADALIMUMAB
     Indication: RHEUMATOID ARTHRITIS
     Route: 058
     Dates: start: 2016, end: 2016

REACTIONS (5)
  - Post procedural infection [Unknown]
  - Tearfulness [Unknown]
  - Stress [Unknown]
  - Urinary tract infection [Unknown]
  - Exostosis [Unknown]

NARRATIVE: CASE EVENT DATE: 20160601
